FAERS Safety Report 5326753-6 (Version None)
Quarter: 2007Q2

REPORT INFORMATION
  Report Type: 
  Country: None (occurrence: None)
  Receive Date: 20070516
  Receipt Date: 20070504
  Transmission Date: 20071010
  Serious: Yes (Hospitalization, Other)
  Sender: FDA-Public Use
  Company Number: US-PFIZER INC-2007024807

PATIENT
  Age: 73 Year
  Sex: Female
  Weight: 65.3 kg

DRUGS (1)
  1. SUTENT [Suspect]
     Indication: RENAL CELL CARCINOMA STAGE UNSPECIFIED
     Dosage: DAILY DOSE:50MG-FREQ:FREQUENCY: DAILY
     Route: 048
     Dates: start: 20061128, end: 20070125

REACTIONS (4)
  - CONFUSIONAL STATE [None]
  - GRAND MAL CONVULSION [None]
  - HYPERTENSION [None]
  - LEUKOENCEPHALOPATHY [None]
